FAERS Safety Report 6994993-6 (Version None)
Quarter: 2010Q3

REPORT INFORMATION
  Report Type: 
  Country: None (occurrence: None)
  Receive Date: 20100915
  Receipt Date: 20100830
  Transmission Date: 20110219
  Serious: Yes (Other)
  Sender: FDA-Public Use
  Company Number: COM10-1164

PATIENT
  Sex: Male

DRUGS (1)
  1. PHENOBARBITAL TAB [Suspect]
     Dosage: 2 PO BID
     Route: 048
     Dates: start: 20100810, end: 20100820

REACTIONS (1)
  - ANTICONVULSANT DRUG LEVEL ABNORMAL [None]
